FAERS Safety Report 25974326 (Version 1)
Quarter: 2025Q4

REPORT INFORMATION
  Report Type: Spontaneous
  Country: US (occurrence: US)
  Receive Date: 20251029
  Receipt Date: 20251029
  Transmission Date: 20260117
  Serious: Yes (Hospitalization)
  Sender: CSL Plasma
  Company Number: US-CSLP-50103293674-V11814565-235

PATIENT
  Age: 41 Year
  Sex: Male

DRUGS (1)
  1. ANTICOAGULANT SODIUM CITRATE [Suspect]
     Active Substance: SODIUM CITRATE
     Indication: Anticoagulant therapy
     Route: 050
     Dates: start: 20251021, end: 20251021

REACTIONS (14)
  - Asthenia [Unknown]
  - Tachypnoea [Unknown]
  - Abdominal pain [Unknown]
  - Pain [Unknown]
  - Tetany [Unknown]
  - Peripheral coldness [Unknown]
  - Movement disorder [Unknown]
  - Thirst [Unknown]
  - Tremor [Unknown]
  - Muscle spasms [Unknown]
  - Dizziness [Unknown]
  - Hypoaesthesia [Unknown]
  - Paraesthesia [Unknown]
  - Hyperventilation [Unknown]

NARRATIVE: CASE EVENT DATE: 20251021
